FAERS Safety Report 7483972-0 (Version None)
Quarter: 2011Q2

REPORT INFORMATION
  Report Type: 
  Country: None (occurrence: None)
  Receive Date: 20110513
  Receipt Date: 20110513
  Transmission Date: 20111010
  Serious: No
  Sender: FDA-Public Use
  Company Number: None

PATIENT
  Age: 62 Year
  Sex: Male
  Weight: 163.2949 kg

DRUGS (1)
  1. VESICARE [Suspect]
     Indication: MICTURITION URGENCY
     Dosage: 10MG 1 PO
     Route: 048
     Dates: start: 20110407, end: 20110502

REACTIONS (2)
  - OEDEMA PERIPHERAL [None]
  - SENSORY DISTURBANCE [None]
